FAERS Safety Report 12632512 (Version 2)
Quarter: 2016Q3

REPORT INFORMATION
  Report Type: Spontaneous
  Country: US (occurrence: US)
  Receive Date: 20160808
  Receipt Date: 20160808
  Transmission Date: 20161109
  Serious: No
  Sender: FDA-Public Use
  Company Number: US-BEH-2016062482

PATIENT
  Sex: Female
  Weight: 52 kg

DRUGS (24)
  1. EPIPEN [Concomitant]
     Active Substance: EPINEPHRINE
  2. AZITHROMYCIN ANHYDROUS. [Concomitant]
     Active Substance: AZITHROMYCIN ANHYDROUS
  3. DIPHENHYDRAMINE. [Concomitant]
     Active Substance: DIPHENHYDRAMINE
  4. LIDOCAINE. [Concomitant]
     Active Substance: LIDOCAINE
  5. DEPAKOTE [Concomitant]
     Active Substance: DIVALPROEX SODIUM
  6. OXYCODONE [Concomitant]
     Active Substance: OXYCODONE
  7. HYDROXYCHLOROQUINE [Concomitant]
     Active Substance: HYDROXYCHLOROQUINE
  8. TOPIRAMATE. [Concomitant]
     Active Substance: TOPIRAMATE
  9. ACETAMINOPHEN. [Concomitant]
     Active Substance: ACETAMINOPHEN
  10. VENTOLIN [Concomitant]
     Active Substance: ALBUTEROL SULFATE
  11. ADVAIR HFA [Concomitant]
     Active Substance: FLUTICASONE PROPIONATE\SALMETEROL XINAFOATE
  12. HIZENTRA [Suspect]
     Active Substance: HUMAN IMMUNOGLOBULIN G
     Indication: IMMUNODEFICIENCY COMMON VARIABLE
     Route: 058
  13. ARMOUR THYROID [Concomitant]
     Active Substance: THYROID, PORCINE
  14. WARFARIN [Concomitant]
     Active Substance: WARFARIN
  15. CYMBALTA [Concomitant]
     Active Substance: DULOXETINE HYDROCHLORIDE
  16. MUPIROCIN. [Concomitant]
     Active Substance: MUPIROCIN
  17. ONDANSETRON [Concomitant]
     Active Substance: ONDANSETRON
  18. VITAMIN D [Concomitant]
     Active Substance: CHOLECALCIFEROL
  19. ZETIA [Concomitant]
     Active Substance: EZETIMIBE
  20. MAGNESIUM [Concomitant]
     Active Substance: MAGNESIUM
  21. LEVOXYL [Concomitant]
     Active Substance: LEVOTHYROXINE SODIUM
  22. CORTIZONE 10 [Concomitant]
     Active Substance: HYDROCORTISONE
  23. MONTELUKAST [Concomitant]
     Active Substance: MONTELUKAST SODIUM
  24. METHADONE [Concomitant]
     Active Substance: METHADONE HYDROCHLORIDE

REACTIONS (1)
  - Sinusitis [Recovering/Resolving]
